FAERS Safety Report 5203587-4 (Version None)
Quarter: 2007Q1

REPORT INFORMATION
  Report Type: 
  Country: None (occurrence: None)
  Receive Date: 20070110
  Receipt Date: 20070102
  Transmission Date: 20070707
  Serious: Yes (Other)
  Sender: FDA-Public Use
  Company Number: FRWYE618222NOV06

PATIENT
  Sex: Female
  Weight: 70 kg

DRUGS (7)
  1. ENBREL [Suspect]
     Indication: RHEUMATOID ARTHRITIS
     Route: 058
     Dates: start: 20030601, end: 20061114
  2. NOVATREX [Suspect]
     Indication: RHEUMATOID ARTHRITIS
     Dosage: UNKNOWN
     Route: 048
     Dates: end: 20051001
  3. ACETAMINOPHEN W/ PROPOXYPHENE HCL [Concomitant]
     Dosage: 6 CAPSULES TOTAL DAILY
     Route: 048
     Dates: start: 20020101
  4. COLECALCIFEROL [Concomitant]
     Route: 048
     Dates: start: 20040201
  5. ACTONEL [Concomitant]
     Dosage: 35 TABLETS TOTAL MONTHLY
     Route: 048
     Dates: start: 20040201
  6. CALCIUM CARBONATE [Concomitant]
     Route: 048
     Dates: start: 20040201
  7. CORTANCYL [Concomitant]
     Dosage: 7 TABLETS; FREQUENCY UNSPECIFIED
     Route: 048
     Dates: start: 20010101

REACTIONS (2)
  - MALIGNANT MELANOMA IN SITU [None]
  - SKIN INJURY [None]
